FAERS Safety Report 24262283 (Version 1)
Quarter: 2024Q3

REPORT INFORMATION
  Report Type: Spontaneous
  Country: US (occurrence: US)
  Receive Date: 20240829
  Receipt Date: 20240829
  Transmission Date: 20241016
  Serious: No
  Sender: BOSTON SCIENTIFIC
  Company Number: US-BSC-2023000115

PATIENT
  Age: 50 Year
  Sex: Male

DRUGS (1)
  1. VARITHENA [Suspect]
     Active Substance: POLIDOCANOL
     Indication: Product used for unknown indication
     Dosage: LOCATION: LEFT KNEE, DOSE: 4-6 CC
     Dates: start: 20231127

REACTIONS (3)
  - Limb discomfort [Recovered/Resolved]
  - Visual impairment [Not Recovered/Not Resolved]
  - Headache [Not Recovered/Not Resolved]

NARRATIVE: CASE EVENT DATE: 20231127
